FAERS Safety Report 14497614 (Version 3)
Quarter: 2018Q2

REPORT INFORMATION
  Report Type: Spontaneous
  Country: FR (occurrence: FR)
  Receive Date: 20180207
  Receipt Date: 20180430
  Transmission Date: 20180711
  Serious: Yes (Hospitalization)
  Sender: FDA-Public Use
  Company Number: FR-BRISTOL-MYERS SQUIBB COMPANY-BMS-2018-007570

PATIENT
  Age: 66 Year
  Sex: Male

DRUGS (3)
  1. KENACORT [Suspect]
     Active Substance: TRIAMCINOLONE
     Indication: JOINT INJECTION
     Dosage: UNK
     Route: 014
  2. XYLOCAINE WITH EPINEPHRINE [Suspect]
     Active Substance: EPINEPHRINE BITARTRATE\LIDOCAINE HYDROCHLORIDE
     Indication: LOCAL ANAESTHESIA
     Dosage: UNK
     Route: 014
  3. IOPAMIRON [Suspect]
     Active Substance: IOPAMIDOL
     Indication: JOINT INJECTION
     Dosage: UNK
     Route: 014

REACTIONS (4)
  - Nausea [Recovered/Resolved]
  - Hyperhidrosis [Recovered/Resolved]
  - Malaise [Recovered/Resolved]
  - Headache [Recovered/Resolved]

NARRATIVE: CASE EVENT DATE: 20170131
